FAERS Safety Report 11214569 (Version 1)
Quarter: 2015Q2

REPORT INFORMATION
  Report Type: Report from Study
  Country: KR (occurrence: KR)
  Receive Date: 20150624
  Receipt Date: 20150624
  Transmission Date: 20150821
  Serious: No
  Sender: FDA-Public Use
  Company Number: PHHY2015KR075126

PATIENT
  Age: 55 Year
  Sex: Female

DRUGS (4)
  1. STILNOX [Concomitant]
     Active Substance: ZOLPIDEM TARTRATE
     Indication: INSOMNIA
     Dosage: 6.25 MG,
     Route: 048
     Dates: start: 20140706
  2. PYRIDOXINE [Concomitant]
     Active Substance: PYRIDOXINE
     Indication: PLEURAL EFFUSION
     Dosage: 50 MG,
     Route: 048
     Dates: start: 20140704
  3. AMN107 [Suspect]
     Active Substance: NILOTINIB
     Indication: CHRONIC MYELOID LEUKAEMIA
     Dosage: 600 MG, QD
     Route: 048
     Dates: start: 20140707
  4. METHYLONE [Concomitant]
     Active Substance: METHYLPREDNISOLONE
     Indication: PLEURAL EFFUSION
     Dosage: 12 MG,
     Route: 048
     Dates: start: 20140708, end: 20140725

REACTIONS (1)
  - Pruritus [Recovered/Resolved]

NARRATIVE: CASE EVENT DATE: 20140714
